FAERS Safety Report 6043969-4 (Version None)
Quarter: 2009Q1

REPORT INFORMATION
  Report Type: 
  Country: None (occurrence: None)
  Receive Date: 20090120
  Receipt Date: 20090112
  Transmission Date: 20090719
  Serious: Yes (Life-Threatening, Other)
  Sender: FDA-Public Use
  Company Number: DE-BRISTOL-MYERS SQUIBB COMPANY-14467948

PATIENT
  Age: 66 Year
  Sex: Female
  Weight: 90 kg

DRUGS (7)
  1. CORIC [Interacting]
     Indication: HYPERTENSION
     Route: 048
     Dates: start: 20050101, end: 20080829
  2. AMOXICILLIN [Suspect]
     Indication: GASTRITIS BACTERIAL
     Route: 048
     Dates: start: 20080731, end: 20080806
  3. TOREM [Interacting]
     Indication: ASCITES
     Route: 048
     Dates: start: 20080802, end: 20080829
  4. CLARITHROMYCIN [Suspect]
     Indication: GASTRITIS BACTERIAL
     Route: 048
     Dates: start: 20080731, end: 20080806
  5. SPIRONOLACTONE [Suspect]
     Indication: ASCITES
     Route: 048
     Dates: start: 20080101, end: 20080829
  6. ALLOPURINOL [Concomitant]
     Indication: BLOOD URIC ACID INCREASED
     Route: 048
     Dates: start: 20070101, end: 20080829
  7. PROPRANOLOL [Concomitant]
     Indication: HYPERTENSION
     Route: 048
     Dates: start: 20080728, end: 20080829

REACTIONS (4)
  - DIARRHOEA [None]
  - DRUG INTERACTION [None]
  - HYPERKALAEMIA [None]
  - SINOATRIAL BLOCK [None]
